FAERS Safety Report 22519570 (Version 1)
Quarter: 2023Q2

REPORT INFORMATION
  Report Type: Spontaneous
  Country: US (occurrence: US)
  Receive Date: 20230605
  Receipt Date: 20230605
  Transmission Date: 20230721
  Serious: Yes (Life-Threatening, Hospitalization)
  Sender: FDA-Public Use
  Company Number: US-drreddys-LIT/USA/23/0166110

PATIENT
  Age: 3 Year
  Sex: Male

DRUGS (3)
  1. FENTANYL CITRATE [Suspect]
     Active Substance: FENTANYL CITRATE
     Indication: Product used for unknown indication
  2. NALOXONE HYDROCHLORIDE [Suspect]
     Active Substance: NALOXONE HYDROCHLORIDE
     Indication: Overdose
  3. NALOXONE HYDROCHLORIDE [Suspect]
     Active Substance: NALOXONE HYDROCHLORIDE

REACTIONS (8)
  - Pulmonary oedema [Recovering/Resolving]
  - Fluid retention [Unknown]
  - Pneumothorax [Unknown]
  - Brain injury [Unknown]
  - Dyspnoea [Unknown]
  - Apnoea [Unknown]
  - Hypoxia [Unknown]
  - Overdose [Unknown]
